FAERS Safety Report 6136800-X (Version None)
Quarter: 2009Q1

REPORT INFORMATION
  Report Type: 
  Country: None (occurrence: None)
  Receive Date: 20090330
  Receipt Date: 20090318
  Transmission Date: 20090719
  Serious: Yes (Other)
  Sender: FDA-Public Use
  Company Number: US-PFIZER INC-2009170691

PATIENT
  Sex: Male
  Weight: 77.11 kg

DRUGS (2)
  1. CHANTIX [Suspect]
     Indication: SMOKING CESSATION THERAPY
     Dosage: 1 UNK, UNK
     Route: 048
     Dates: start: 20081201, end: 20090101
  2. ALCOHOL [Suspect]
     Dosage: UNK

REACTIONS (3)
  - BIPOLAR DISORDER [None]
  - LOSS OF CONSCIOUSNESS [None]
  - RECTAL HAEMORRHAGE [None]
